FAERS Safety Report 16774765 (Version 1)
Quarter: 2019Q3

REPORT INFORMATION
  Report Type: Spontaneous
  Country: CA (occurrence: CA)
  Receive Date: 20190905
  Receipt Date: 20190905
  Transmission Date: 20191005
  Serious: Yes (Other)
  Sender: FDA-Public Use
  Company Number: CA-TEVA-2019-CA-1102395

PATIENT
  Sex: Male

DRUGS (2)
  1. ACT-OXYCODONE CR [Suspect]
     Active Substance: OXYCODONE
     Indication: BACK PAIN
     Route: 048
  2. ACT-OXYCODONE CR [Suspect]
     Active Substance: OXYCODONE
     Indication: MUSCLE SPASMS
     Route: 048

REACTIONS (5)
  - Dependence [Unknown]
  - Nausea [Unknown]
  - Vomiting [Unknown]
  - Suicidal ideation [Unknown]
  - Mood swings [Unknown]
